FAERS Safety Report 11022286 (Version 1)
Quarter: 2015Q2

REPORT INFORMATION
  Report Type: Spontaneous
  Country: FR (occurrence: FR)
  Receive Date: 20150413
  Receipt Date: 20150413
  Transmission Date: 20150821
  Serious: Yes (Other)
  Sender: FDA-Public Use
  Company Number: FR-PERRIGO-15FR003693

PATIENT
  Sex: Female

DRUGS (1)
  1. BROMOCRIPTINE MESYLATE USP RX 2.5 MG 2P6 [Suspect]
     Active Substance: BROMOCRIPTINE MESYLATE
     Indication: LACTATION INHIBITION THERAPY
     Dosage: UNK
     Route: 065

REACTIONS (2)
  - Drug dose titration not performed [Unknown]
  - Seizure [Unknown]
